FAERS Safety Report 9446018 (Version 1)
Quarter: 2013Q3

REPORT INFORMATION
  Report Type: Spontaneous
  Country: DE (occurrence: DE)
  Receive Date: 20130807
  Receipt Date: 20130807
  Transmission Date: 20140515
  Serious: Yes (Other)
  Sender: FDA-Public Use
  Company Number: DE-MYLANLABS-2013S1017096

PATIENT
  Sex: 0

DRUGS (6)
  1. REMIFENTANIL [Suspect]
     Indication: ANALGESIC THERAPY
     Dosage: START DOSE: 9 MCG/KG/H
     Route: 042
  2. REMIFENTANIL [Suspect]
     Indication: SEDATION
     Dosage: START DOSE: 9 MCG/KG/H
     Route: 042
  3. REMIFENTANIL [Suspect]
     Indication: ANALGESIC THERAPY
     Dosage: MAXIMUM DOSE: 30MCG/KG/HR
  4. REMIFENTANIL [Suspect]
     Indication: SEDATION
     Dosage: MAXIMUM DOSE: 30MCG/KG/HR
  5. MIDAZOLAM [Suspect]
     Indication: ANALGESIC THERAPY
  6. MIDAZOLAM [Suspect]
     Indication: SEDATION

REACTIONS (1)
  - Withdrawal syndrome [Unknown]
